FAERS Safety Report 8393369-7 (Version None)
Quarter: 2012Q2

REPORT INFORMATION
  Report Type: 
  Country: None (occurrence: None)
  Receive Date: 20120529
  Receipt Date: 20120516
  Transmission Date: 20120825
  Serious: Yes (Other)
  Sender: FDA-Public Use
  Company Number: JP-CELGENEUS-087-21660-11053180

PATIENT
  Sex: Female
  Weight: 40 kg

DRUGS (8)
  1. ABRAXANE [Suspect]
     Dosage: 300 MILLIGRAM
     Route: 041
     Dates: start: 20110818
  2. FEMARA [Concomitant]
     Indication: BREAST CANCER METASTATIC
     Dosage: 2.5 MILLIGRAM
     Route: 048
     Dates: start: 20101213
  3. ABRAXANE [Suspect]
     Dosage: 300 MILLIGRAM
     Route: 041
     Dates: start: 20110609, end: 20110609
  4. ABRAXANE [Suspect]
     Dosage: 300 MILLIGRAM
     Route: 041
     Dates: start: 20110512, end: 20110512
  5. ABRAXANE [Suspect]
     Dosage: 300 MILLIGRAM
     Route: 041
     Dates: start: 20110127, end: 20110127
  6. ABRAXANE [Suspect]
     Indication: BREAST CANCER METASTATIC
     Dosage: 300 MILLIGRAM
     Route: 041
     Dates: start: 20101214, end: 20101214
  7. ABRAXANE [Suspect]
     Dosage: 300 MILLIGRAM
     Route: 041
     Dates: start: 20110106, end: 20110106
  8. ABRAXANE [Suspect]
     Dosage: 300 MILLIGRAM
     Route: 041
     Dates: start: 20110217, end: 20110217

REACTIONS (3)
  - ARTHRALGIA [None]
  - NAIL AVULSION [None]
  - ALOPECIA [None]
